FAERS Safety Report 24164008 (Version 1)
Quarter: 2024Q3

REPORT INFORMATION
  Report Type: Spontaneous
  Country: CA (occurrence: CA)
  Receive Date: 20240801
  Receipt Date: 20240801
  Transmission Date: 20241016
  Serious: Yes (Hospitalization, Other)
  Sender: DAIICHI
  Company Number: CA-AstraZeneca-2024A170153

PATIENT
  Age: 47 Year
  Sex: Female
  Weight: 101 kg

DRUGS (1)
  1. TRASTUZUMAB DERUXTECAN [Suspect]
     Active Substance: TRASTUZUMAB DERUXTECAN
     Indication: HER2 positive breast cancer
     Dosage: 5.4 MG/KG , ONCE EVERY 3 WK
     Route: 042

REACTIONS (4)
  - Heart rate decreased [Unknown]
  - Seizure [Unknown]
  - Nausea [Unknown]
  - Fatigue [Unknown]
